APPROVED DRUG PRODUCT: FLUNISOLIDE
Active Ingredient: FLUNISOLIDE
Strength: 0.025MG/SPRAY
Dosage Form/Route: SPRAY, METERED;NASAL
Application: A207802 | Product #001 | TE Code: AB
Applicant: RICONPHARMA LLC
Approved: Jun 16, 2022 | RLD: No | RS: No | Type: RX